FAERS Safety Report 23716653 (Version 1)
Quarter: 2024Q2

REPORT INFORMATION
  Report Type: Report from Study
  Country: CA (occurrence: CA)
  Receive Date: 20240408
  Receipt Date: 20240408
  Transmission Date: 20240715
  Serious: Yes (Death, Other)
  Sender: FDA-Public Use
  Company Number: CA-CELLTRION INC.-2024CA007853

PATIENT

DRUGS (2)
  1. BEVACIZUMAB [Suspect]
     Active Substance: BEVACIZUMAB
     Indication: Glioblastoma
     Dosage: 820 MILLIGRAM, 1 EVERY 4 WEEKS
     Route: 065
  2. BEVACIZUMAB [Suspect]
     Active Substance: BEVACIZUMAB
     Dosage: 10 MILLIGRAM/KILOGRAM, 1 EVERY 2 WEEKS
     Route: 065

REACTIONS (5)
  - Death [Fatal]
  - Glioblastoma [Fatal]
  - Upper respiratory tract congestion [Fatal]
  - Pulmonary embolism [Fatal]
  - Intentional product use issue [Unknown]
